FAERS Safety Report 13355479 (Version 1)
Quarter: 2017Q1

REPORT INFORMATION
  Report Type: Spontaneous
  Country: US (occurrence: US)
  Receive Date: 20170321
  Receipt Date: 20170321
  Transmission Date: 20170429
  Serious: No
  Sender: FDA-Public Use
  Company Number: ALCN2017US002099

PATIENT
  Age: 2 Year

DRUGS (1)
  1. CIPRODEX [Suspect]
     Active Substance: CIPROFLOXACIN HYDROCHLORIDE\DEXAMETHASONE
     Indication: EAR INFECTION
     Dosage: 4 GTT, UNK
     Route: 047

REACTIONS (1)
  - Incorrect route of drug administration [Unknown]

NARRATIVE: CASE EVENT DATE: 20170317
